FAERS Safety Report 6555604-7 (Version None)
Quarter: 2010Q1

REPORT INFORMATION
  Report Type: 
  Country: None (occurrence: None)
  Receive Date: 20100128
  Receipt Date: 20100114
  Transmission Date: 20100710
  Serious: Yes (Congenital Anomaly)
  Sender: FDA-Public Use
  Company Number: ZA-BRISTOL-MYERS SQUIBB COMPANY-14948632

PATIENT

DRUGS (1)
  1. EFAVIRENZ [Suspect]
     Route: 064

REACTIONS (1)
  - POLYDACTYLY [None]
